FAERS Safety Report 5924849-9 (Version None)
Quarter: 2008Q4

REPORT INFORMATION
  Report Type: 
  Country: None (occurrence: None)
  Receive Date: 20081021
  Receipt Date: 20081015
  Transmission Date: 20090506
  Serious: Yes (Hospitalization)
  Sender: FDA-Public Use
  Company Number: AT-WYE-G02368108

PATIENT
  Sex: Female

DRUGS (4)
  1. VENLAFAXINE HCL [Suspect]
     Indication: DEPRESSION
  2. VENLAFAXINE HCL [Suspect]
  3. ACE INHIBITOR NOS [Concomitant]
  4. SERTRALINE [Suspect]
     Indication: DEPRESSION

REACTIONS (2)
  - FACIAL BONES FRACTURE [None]
  - HYPONATRAEMIA [None]
